FAERS Safety Report 6124738-3 (Version None)
Quarter: 2009Q1

REPORT INFORMATION
  Report Type: 
  Country: None (occurrence: None)
  Receive Date: 20090319
  Receipt Date: 20090310
  Transmission Date: 20090719
  Serious: Yes (Other)
  Sender: FDA-Public Use
  Company Number: TW-TEVA-187187ISR

PATIENT
  Age: 66 Year
  Sex: Male
  Weight: 60.7 kg

DRUGS (8)
  1. FOLINIC ACID [Suspect]
     Indication: COLORECTAL CANCER
     Dates: start: 20080908
  2. FLUOROURACIL [Suspect]
     Indication: COLORECTAL CANCER
     Route: 040
     Dates: start: 20080908
  3. IRINOTECAN HYDROCHLORIDE [Suspect]
     Indication: COLORECTAL CANCER
     Route: 042
     Dates: start: 20080908
  4. SUNITINIB MALATE:PLACEBO [Suspect]
     Indication: COLORECTAL CANCER
     Route: 048
     Dates: start: 20080908
  5. FINASTERIDE [Concomitant]
     Dates: start: 20090206
  6. ROSIGLITAZONE MALEATE [Concomitant]
     Dates: start: 20080908
  7. GLIBENCLAMIDE [Concomitant]
     Dates: start: 20080908
  8. TAMSULOSIN HCL [Concomitant]
     Dates: start: 20080908

REACTIONS (2)
  - BLOOD CHLORIDE DECREASED [None]
  - HYPONATRAEMIA [None]
